FAERS Safety Report 19163035 (Version 1)
Quarter: 2021Q2

REPORT INFORMATION
  Report Type: Spontaneous
  Country: US (occurrence: US)
  Receive Date: 20210420
  Receipt Date: 20210420
  Transmission Date: 20210717
  Serious: Yes (Hospitalization)
  Sender: FDA-Public Use
  Company Number: None

PATIENT
  Age: 87 Year
  Sex: Male

DRUGS (1)
  1. GENTAMICIN (GENTAMICIN SO4 0.8MG/ML INJ) [Suspect]
     Active Substance: GENTAMICIN SULFATE
     Indication: ENDOCARDITIS
     Route: 042
     Dates: start: 20210310, end: 20210326

REACTIONS (4)
  - Blood urea increased [None]
  - Acute kidney injury [None]
  - Hyperkalaemia [None]
  - Blood creatinine increased [None]

NARRATIVE: CASE EVENT DATE: 20210326
